FAERS Safety Report 9114669 (Version 1)
Quarter: 2013Q1

REPORT INFORMATION
  Report Type: Spontaneous
  Country: DE (occurrence: None)
  Receive Date: 20130129
  Receipt Date: 20130129
  Transmission Date: 20140127
  Serious: Yes (Hospitalization, Other)
  Sender: FDA-Public Use
  Company Number: DE-010673

PATIENT
  Age: 40 Year
  Sex: Female

DRUGS (3)
  1. MENOGON HP (MENOGON HP) [Suspect]
     Indication: OVULATION INDUCTION
     Route: 058
     Dates: start: 20130110, end: 20130110
  2. FOLIO [Concomitant]
  3. L-THYROXIN [Concomitant]

REACTIONS (6)
  - Blood pressure increased [None]
  - Blood creatine phosphokinase increased [None]
  - Anxiety [None]
  - Nervousness [None]
  - Asthma [None]
  - Muscle tightness [None]
